FAERS Safety Report 11543064 (Version 1)
Quarter: 2015Q3

REPORT INFORMATION
  Report Type: Spontaneous
  Country: US (occurrence: US)
  Receive Date: 20150903
  Receipt Date: 20150903
  Transmission Date: 20151125
  Serious: Yes (Hospitalization)
  Sender: FDA-Public Use
  Company Number: US-ELI_LILLY_AND_COMPANY-US201205008150

PATIENT
  Age: 10 Year
  Sex: Male

DRUGS (4)
  1. HUMALOG [Suspect]
     Active Substance: INSULIN LISPRO
     Route: 058
  2. HUMALOG [Suspect]
     Active Substance: INSULIN LISPRO
     Route: 058
  3. HUMALOG [Suspect]
     Active Substance: INSULIN LISPRO
     Indication: DIABETES MELLITUS
     Dosage: UNK
     Route: 058
     Dates: start: 2006
  4. HUMALOG [Suspect]
     Active Substance: INSULIN LISPRO
     Dosage: UNK
     Route: 058

REACTIONS (5)
  - Expired product administered [Unknown]
  - Blood glucose increased [Unknown]
  - Vomiting [Unknown]
  - Drug ineffective [Unknown]
  - Blood ketone body increased [Unknown]

NARRATIVE: CASE EVENT DATE: 20120514
